FAERS Safety Report 20530281 (Version 4)
Quarter: 2022Q3

REPORT INFORMATION
  Report Type: Report from Study
  Country: US (occurrence: US)
  Receive Date: 20220301
  Receipt Date: 20220707
  Transmission Date: 20221027
  Serious: No
  Sender: FDA-Public Use
  Company Number: US-NOVARTISTESTPH-NVSC2022US047966

PATIENT
  Sex: Male

DRUGS (2)
  1. KESIMPTA [Suspect]
     Active Substance: OFATUMUMAB
     Indication: Multiple sclerosis
     Dosage: 20 MG, QMO
     Route: 058
     Dates: start: 20220202
  2. KESIMPTA [Suspect]
     Active Substance: OFATUMUMAB
     Dosage: 20 UNK
     Route: 058
     Dates: start: 20220224, end: 20220705

REACTIONS (2)
  - Energy increased [Recovering/Resolving]
  - Depression [Recovering/Resolving]
